FAERS Safety Report 7424514-5 (Version None)
Quarter: 2011Q2

REPORT INFORMATION
  Report Type: 
  Country: None (occurrence: None)
  Receive Date: 20110411
  Receipt Date: 20110401
  Transmission Date: 20111010
  Serious: Yes (Other)
  Sender: FDA-Public Use
  Company Number: US-005068

PATIENT
  Sex: Female

DRUGS (1)
  1. TRANEXAMIC ACID 1300 MG [Suspect]
     Indication: MENORRHAGIA
     Dosage: (1300 MG TID ORAL)
     Route: 048

REACTIONS (2)
  - ANORECTAL DISORDER [None]
  - THROMBOSIS [None]
